FAERS Safety Report 21189179 (Version 1)
Quarter: 2022Q3

REPORT INFORMATION
  Report Type: Spontaneous
  Country: US (occurrence: US)
  Receive Date: 20220809
  Receipt Date: 20220809
  Transmission Date: 20221027
  Serious: No
  Sender: FDA-Public Use
  Company Number: US-ORGANON-O2208USA000261

PATIENT
  Age: 42 Year
  Sex: Female

DRUGS (2)
  1. FOLLISTIM [Suspect]
     Active Substance: FOLLITROPIN
     Dosage: 400 INTERNATIONAL UNIT, QD
  2. FOLLISTIM [Suspect]
     Active Substance: FOLLITROPIN

REACTIONS (4)
  - Product packaging issue [Unknown]
  - Product dose omission issue [Unknown]
  - Suspected counterfeit product [Unknown]
  - No adverse event [Unknown]

NARRATIVE: CASE EVENT DATE: 20220729
